FAERS Safety Report 5910166-X (Version None)
Quarter: 2008Q4

REPORT INFORMATION
  Report Type: 
  Country: None (occurrence: None)
  Receive Date: 20081006
  Receipt Date: 20081006
  Transmission Date: 20090506
  Serious: No
  Sender: FDA-Public Use
  Company Number: None

PATIENT

DRUGS (2)
  1. DILANTIN [Suspect]
  2. PHENABARBITAL [Suspect]

REACTIONS (9)
  - ABDOMINAL PAIN UPPER [None]
  - ASTHENIA [None]
  - DIARRHOEA [None]
  - EYELID OEDEMA [None]
  - FEELING ABNORMAL [None]
  - NAUSEA [None]
  - PYREXIA [None]
  - TREMOR [None]
  - VERTIGO [None]
